FAERS Safety Report 4368104-X (Version None)
Quarter: 2004Q2

REPORT INFORMATION
  Report Type: 
  Country: None (occurrence: None)
  Receive Date: 20040602
  Receipt Date: 20040524
  Transmission Date: 20050107
  Serious: Yes (Hospitalization)
  Sender: FDA-Public Use
  Company Number: US-BRISTOL-MYERS SQUIBB COMPANY-12594271

PATIENT
  Age: 74 Year
  Sex: Female

DRUGS (10)
  1. PACLITAXEL [Suspect]
     Indication: BLADDER CANCER
     Dates: start: 20040505, end: 20040505
  2. CARBOPLATIN [Suspect]
     Indication: BLADDER CANCER
     Dosage: AUC=5
     Dates: start: 20040505, end: 20040505
  3. GEMCITABINE [Suspect]
     Indication: BLADDER CANCER
     Dates: start: 20040512, end: 20040512
  4. LEVOXYL [Concomitant]
  5. ADVIL [Concomitant]
  6. IMODIUM [Concomitant]
  7. SPIRONOLACTONE [Concomitant]
  8. ATENOLOL [Concomitant]
  9. GLUCOSAMINE [Concomitant]
  10. ASPIRIN [Concomitant]

REACTIONS (7)
  - COLITIS [None]
  - DEHYDRATION [None]
  - DIARRHOEA [None]
  - PANCYTOPENIA [None]
  - PHARYNGITIS STREPTOCOCCAL [None]
  - SEPSIS [None]
  - URINARY TRACT INFECTION [None]
